FAERS Safety Report 14239202 (Version 2)
Quarter: 2017Q4

REPORT INFORMATION
  Report Type: Spontaneous
  Country: FR (occurrence: FR)
  Receive Date: 20171130
  Receipt Date: 20171229
  Transmission Date: 20180321
  Serious: Yes (Hospitalization, Other)
  Sender: FDA-Public Use
  Company Number: US-ASTRAZENECA-2017SF21035

PATIENT
  Age: 3 Month
  Sex: Male
  Weight: 3.1 kg

DRUGS (1)
  1. SYNAGIS [Suspect]
     Active Substance: PALIVIZUMAB
     Indication: ANTIVIRAL PROPHYLAXIS
     Route: 030
     Dates: start: 20171012

REACTIONS (2)
  - Bronchiolitis [Recovering/Resolving]
  - Cardio-respiratory arrest [Unknown]

NARRATIVE: CASE EVENT DATE: 20171102
